FAERS Safety Report 8175842-X (Version None)
Quarter: 2012Q1

REPORT INFORMATION
  Report Type: 
  Country: None (occurrence: None)
  Receive Date: 20120228
  Receipt Date: 20120228
  Transmission Date: 20120608
  Serious: No
  Sender: FDA-Public Use
  Company Number: None

PATIENT

DRUGS (3)
  1. ALPRAZOLAM [Suspect]
     Indication: BIPOLAR DISORDER
  2. ALPRAZOLAM [Suspect]
     Indication: ANXIETY
  3. XANAX [Suspect]
     Indication: PANIC DISORDER
     Dosage: 1 MG TID BY MOUTH
     Route: 048
     Dates: start: 20110101, end: 20120101

REACTIONS (2)
  - DRUG INEFFECTIVE [None]
  - PRODUCT SUBSTITUTION ISSUE [None]
